FAERS Safety Report 19511871 (Version 1)
Quarter: 2021Q3

REPORT INFORMATION
  Report Type: Spontaneous
  Country: FR (occurrence: FR)
  Receive Date: 20210709
  Receipt Date: 20210709
  Transmission Date: 20211014
  Serious: Yes (Hospitalization, Other)
  Sender: FDA-Public Use
  Company Number: FR-SA-2021SA173808

PATIENT
  Age: 73 Year
  Sex: Male

DRUGS (5)
  1. FUROSEMIDE. [Concomitant]
     Active Substance: FUROSEMIDE
     Indication: HYPERTENSION
  2. RIFATER [Suspect]
     Active Substance: ISONIAZID\PYRAZINAMIDE\RIFAMPIN
     Indication: PULMONARY TUBERCULOSIS
     Dosage: UNK
     Dates: start: 20050206, end: 20050207
  3. ALDACTONE [Concomitant]
     Active Substance: SPIRONOLACTONE
     Indication: HYPERTENSION
  4. AMLODIPINE [Concomitant]
     Active Substance: AMLODIPINE BESYLATE
     Indication: HYPERTENSION
  5. PERMIXON [Concomitant]
     Active Substance: HERBALS\SAW PALMETTO
     Indication: PROSTATIC ADENOMA

REACTIONS (12)
  - Thrombocytopenia [Unknown]
  - Immune thrombocytopenia [Unknown]
  - Bullous haemorrhagic dermatosis [Unknown]
  - Purpura [Unknown]
  - Petechiae [Unknown]
  - Purpura [Unknown]
  - Skin lesion [Unknown]
  - Hypergammaglobulinaemia [Unknown]
  - Blood immunoglobulin E increased [Unknown]
  - Epistaxis [Unknown]
  - Scar [Unknown]
  - Hyperglobulinaemia [Unknown]

NARRATIVE: CASE EVENT DATE: 200502
